FAERS Safety Report 5941323-4 (Version None)
Quarter: 2008Q4

REPORT INFORMATION
  Report Type: 
  Country: None (occurrence: None)
  Receive Date: 20081103
  Receipt Date: 20081103
  Transmission Date: 20090506
  Serious: Yes (Other)
  Sender: FDA-Public Use
  Company Number: None

PATIENT
  Sex: Male
  Weight: 65.7716 kg

DRUGS (1)
  1. PROPECIA [Suspect]
     Indication: ALOPECIA
     Dosage: 1 MG DAILY PO, DAILY
     Route: 048
     Dates: start: 20080923, end: 20081011

REACTIONS (6)
  - COMMUNICATION DISORDER [None]
  - DEPRESSED MOOD [None]
  - DISTURBANCE IN ATTENTION [None]
  - FEELING OF DESPAIR [None]
  - LIBIDO DECREASED [None]
  - MEMORY IMPAIRMENT [None]
